FAERS Safety Report 9435649 (Version 2)
Quarter: 2013Q3

REPORT INFORMATION
  Report Type: Spontaneous
  Country: US (occurrence: US)
  Receive Date: 20130801
  Receipt Date: 20130923
  Transmission Date: 20140515
  Serious: Yes (Other)
  Sender: FDA-Public Use
  Company Number: US-ALLERGAN-1311124US

PATIENT
  Age: 53 Year
  Sex: Female

DRUGS (1)
  1. BOTOX COSMETIC [Suspect]
     Indication: SKIN WRINKLING
     Dosage: 23 UNITS, SINGLE
     Route: 030
     Dates: start: 20130723, end: 20130723

REACTIONS (8)
  - Swollen tongue [Unknown]
  - Palpitations [Unknown]
  - Tremor [Unknown]
  - Dysphagia [Unknown]
  - Feeling abnormal [Unknown]
  - Off label use [Unknown]
  - Hypertension [Unknown]
  - Hypersensitivity [Unknown]
